FAERS Safety Report 5535025-6 (Version None)
Quarter: 2007Q4

REPORT INFORMATION
  Report Type: 
  Country: None (occurrence: None)
  Receive Date: 20071203
  Receipt Date: 20071119
  Transmission Date: 20080405
  Serious: Yes (Other)
  Sender: FDA-Public Use
  Company Number: 021152

PATIENT
  Age: 47 Year
  Sex: Female

DRUGS (3)
  1. CARBOPLATIN [Suspect]
     Indication: ENDOMETRIAL CANCER STAGE III
  2. PACLITAXEL [Suspect]
     Indication: ENDOMETRIAL CANCER STAGE III
     Dosage: 175 MG/M2
  3. DOCETAXEL [Suspect]
     Indication: ENDOMETRIAL CANCER STAGE III
     Dosage: 80 MG/M2

REACTIONS (6)
  - BURNING SENSATION [None]
  - HYPOAESTHESIA [None]
  - NEURALGIA [None]
  - PARAESTHESIA [None]
  - PERIPHERAL SENSORY NEUROPATHY [None]
  - RESTLESS LEGS SYNDROME [None]
